FAERS Safety Report 7203069-4 (Version None)
Quarter: 2010Q4

REPORT INFORMATION
  Report Type: 
  Country: None (occurrence: None)
  Receive Date: 20101229
  Receipt Date: 20101222
  Transmission Date: 20110411
  Serious: Yes (Other)
  Sender: FDA-Public Use
  Company Number: US-ABBOTT-10P-163-0676466-00

PATIENT
  Sex: Female
  Weight: 29.51 kg

DRUGS (3)
  1. TRIDIONE [Suspect]
     Indication: PETIT MAL EPILEPSY
     Dosage: 1 1/2 PILL BID (150MG)
     Dates: start: 20100901, end: 20101001
  2. BANZEL [Concomitant]
     Indication: PRODUCT USED FOR UNKNOWN INDICATION
  3. DEPAKOTE ER [Concomitant]
     Indication: PRODUCT USED FOR UNKNOWN INDICATION

REACTIONS (2)
  - CONVULSION [None]
  - SOMNOLENCE [None]
